FAERS Safety Report 6572460-1 (Version None)
Quarter: 2010Q1

REPORT INFORMATION
  Report Type: 
  Country: None (occurrence: None)
  Receive Date: 20100205
  Receipt Date: 20100129
  Transmission Date: 20100710
  Serious: Yes (Hospitalization)
  Sender: FDA-Public Use
  Company Number: DE-TEVA-222936ISR

PATIENT
  Age: 70 Year
  Sex: Female
  Weight: 45 kg

DRUGS (9)
  1. SIMVASTATIN [Interacting]
     Indication: DYSLIPIDAEMIA
     Route: 048
  2. FENTANYL-100 [Suspect]
     Indication: PAIN
     Route: 062
     Dates: start: 20090601, end: 20090727
  3. MADOPAR [Interacting]
     Indication: RESTLESS LEGS SYNDROME
     Dosage: 100MG LEVODOOPA+25MG BENSERAZIDE
     Route: 048
     Dates: start: 20060101
  4. CANDESARTAN CILEXETIL [Interacting]
     Indication: HYPERTENSION
     Route: 048
     Dates: start: 20070101
  5. CARVEDILOL [Interacting]
     Indication: HYPERTENSION
     Route: 048
     Dates: start: 20060101
  6. OMEPRAZOLE [Interacting]
     Indication: PROPHYLAXIS AGAINST GASTROINTESTINAL ULCER
     Route: 048
     Dates: start: 20050101
  7. CINACALCET HYDROCHLORIDE [Interacting]
     Indication: SECONDARY HYPERTHYROIDISM
     Route: 048
     Dates: start: 20060101
  8. REPAGLINIDE [Interacting]
     Indication: TYPE 2 DIABETES MELLITUS
     Route: 048
     Dates: start: 20070101
  9. RISEDRONATE SODIUM [Interacting]
     Indication: OSTEOPOROSIS
     Route: 048
     Dates: start: 20080101

REACTIONS (3)
  - DRUG INTERACTION [None]
  - SOMNOLENCE [None]
  - TRANSAMINASES INCREASED [None]
